FAERS Safety Report 6631807-8 (Version None)
Quarter: 2010Q1

REPORT INFORMATION
  Report Type: 
  Country: None (occurrence: None)
  Receive Date: 20100312
  Receipt Date: 20100302
  Transmission Date: 20100710
  Serious: Yes (Life-Threatening, Other)
  Sender: FDA-Public Use
  Company Number: BR-JNJFOC-20100301713

PATIENT
  Sex: Male
  Weight: 2.56 kg

DRUGS (2)
  1. REMICADE [Suspect]
     Indication: DRUG EXPOSURE DURING PREGNANCY
     Route: 064
  2. ANTIBIOTICS NOS [Concomitant]
     Indication: INFECTION PROPHYLAXIS

REACTIONS (3)
  - ANAEMIA [None]
  - KIDNEY MALFORMATION [None]
  - PREMATURE BABY [None]
